FAERS Safety Report 4741593-4 (Version None)
Quarter: 2005Q3

REPORT INFORMATION
  Report Type: 
  Country: None (occurrence: None)
  Receive Date: 20050801
  Receipt Date: 20050627
  Transmission Date: 20060218
  Serious: No
  Sender: FDA-Public Use
  Company Number: 2005PV000166

PATIENT
  Age: 69 Year
  Sex: Male
  Weight: 100.2449 kg

DRUGS (4)
  1. BYETTA [Suspect]
     Indication: DIABETES MELLITUS NON-INSULIN-DEPENDENT
     Dosage: 5 UG;BID;SC
     Route: 058
     Dates: start: 20050622
  2. GLIPIZIDE [Concomitant]
  3. PREVACID [Concomitant]
  4. FELODIPINE [Concomitant]

REACTIONS (1)
  - DRUG INEFFECTIVE [None]
